FAERS Safety Report 26099621 (Version 1)
Quarter: 2025Q4

REPORT INFORMATION
  Report Type: Spontaneous
  Country: US (occurrence: US)
  Receive Date: 20251128
  Receipt Date: 20251128
  Transmission Date: 20260118
  Serious: Yes (Life-Threatening, Hospitalization)
  Sender: MICRO LABS LIMITED
  Company Number: US-MICRO LABS LIMITED-ML2025-06207

PATIENT
  Age: 74 Year
  Sex: Female
  Weight: 76 kg

DRUGS (6)
  1. SUCCINYLCHOLINE CHLORIDE [Suspect]
     Active Substance: SUCCINYLCHOLINE CHLORIDE
     Indication: Induction of anaesthesia
     Dosage: SUCCINYLCHOLINE 100 MG (1.3 MG/KG).
  2. PROPOFOL [Concomitant]
     Active Substance: PROPOFOL
     Indication: Induction of anaesthesia
     Dosage: PROPOFOL 200 MG (2.6 MG/KG)
  3. PROPOFOL [Concomitant]
     Active Substance: PROPOFOL
     Indication: Maintenance of anaesthesia
     Dosage: INFUSIONS OF PROPOFOL (25 MCG/KG/MIN)
  4. SEVOFLURANE [Concomitant]
     Active Substance: SEVOFLURANE
     Indication: Maintenance of anaesthesia
     Dosage: CLOSE TO 0.5 MINIMAL ALVEOLAR CONCENTRATION (MAC)
  5. REMIFENTANIL [Concomitant]
     Active Substance: REMIFENTANIL
     Indication: Maintenance of anaesthesia
     Dosage: 0.1 MG/KG/MIN
  6. FENTANYL [Concomitant]
     Active Substance: FENTANYL
     Indication: Induction of anaesthesia

REACTIONS (4)
  - Unmasking of previously unidentified disease [Unknown]
  - Pseudocholinesterase deficiency [Unknown]
  - Neuromuscular block prolonged [Recovered/Resolved]
  - Asthenia [Recovered/Resolved]
